FAERS Safety Report 7944678-4 (Version None)
Quarter: 2011Q4

REPORT INFORMATION
  Report Type: 
  Country: None (occurrence: None)
  Receive Date: 20111129
  Receipt Date: 20111121
  Transmission Date: 20120403
  Serious: Yes (Other)
  Sender: FDA-Public Use
  Company Number: DE-JNJFOC-20110600269

PATIENT
  Sex: Female

DRUGS (1)
  1. SIMPONI [Suspect]
     Indication: RHEUMATOID ARTHRITIS
     Dosage: AUTO INJECTOR
     Route: 058
     Dates: start: 20100901

REACTIONS (3)
  - TACHYCARDIA [None]
  - HYPERHIDROSIS [None]
  - HYPERTENSION [None]
